FAERS Safety Report 6044154-2 (Version None)
Quarter: 2009Q1

REPORT INFORMATION
  Report Type: 
  Country: None (occurrence: None)
  Receive Date: 20090120
  Receipt Date: 20090112
  Transmission Date: 20090719
  Serious: Yes (Hospitalization)
  Sender: FDA-Public Use
  Company Number: US-ELI_LILLY_AND_COMPANY-US200901001569

PATIENT
  Sex: Female

DRUGS (3)
  1. HUMULIN R [Suspect]
  2. HUMULIN N [Suspect]
  3. ANTIPSYCHOTICS [Concomitant]

REACTIONS (4)
  - BLOOD GLUCOSE DECREASED [None]
  - BLOOD GLUCOSE INCREASED [None]
  - SURGERY [None]
  - TREMOR [None]
